FAERS Safety Report 6171394-4 (Version None)
Quarter: 2009Q2

REPORT INFORMATION
  Report Type: 
  Country: None (occurrence: None)
  Receive Date: 20090429
  Receipt Date: 20090420
  Transmission Date: 20091009
  Serious: Yes (Hospitalization)
  Sender: FDA-Public Use
  Company Number: DK-ASTRAZENECA-2009SE01590

PATIENT
  Sex: Female

DRUGS (2)
  1. SPIROCORT [Suspect]
     Indication: ASTHMA
     Route: 055
     Dates: start: 20010101
  2. OXIS [Concomitant]
     Indication: ASTHMA
     Route: 055
     Dates: start: 20010101

REACTIONS (2)
  - ASTHMA [None]
  - DRUG DOSE OMISSION [None]
